FAERS Safety Report 6976102-2 (Version None)
Quarter: 2010Q3

REPORT INFORMATION
  Report Type: 
  Country: None (occurrence: None)
  Receive Date: 20100910
  Receipt Date: 20100901
  Transmission Date: 20110219
  Serious: Yes (Disabling)
  Sender: FDA-Public Use
  Company Number: CA-PFIZER INC-2010099715

PATIENT
  Age: 78 Year
  Sex: Male
  Weight: 75 kg

DRUGS (22)
  1. SUTENT [Suspect]
     Indication: GASTROINTESTINAL STROMAL TUMOUR
     Dosage: 25 MG, 1X/DAY
     Route: 048
     Dates: start: 20090527
  2. FLEXERIL [Concomitant]
     Dosage: UNK
  3. PROSCAR [Concomitant]
     Dosage: UNK
  4. ALFUZOSIN HCL [Concomitant]
     Dosage: UNK
  5. FOSAMAX [Concomitant]
     Dosage: UNK
  6. PANTOLOC ^NYCOMED^ [Concomitant]
     Dosage: UNK
  7. SENNA [Concomitant]
     Dosage: UNK
  8. DOCUSATE [Concomitant]
     Dosage: UNK
  9. CALCITE D [Concomitant]
     Dosage: UNK
  10. SERAX [Concomitant]
     Dosage: UNK
  11. KEPPRA [Concomitant]
     Dosage: UNK
  12. ALTACE [Concomitant]
     Dosage: UNK
  13. LOPRESSOR [Concomitant]
     Dosage: UNK
  14. PRAVACHOL [Concomitant]
     Dosage: UNK
  15. QUININE [Concomitant]
     Dosage: UNK
  16. TYLENOL [Concomitant]
     Dosage: UNK
  17. CALCITONIN [Concomitant]
     Dosage: UNK
  18. DILAUDID [Concomitant]
     Dosage: UNK
  19. COUMADIN [Concomitant]
     Dosage: UNK
  20. DURAGESIC-100 [Concomitant]
     Dosage: UNK
  21. LACTULOSE [Concomitant]
     Dosage: UNK
  22. STEMETIL ^AVENTIS PHARMA^ [Concomitant]
     Dosage: UNK

REACTIONS (1)
  - HYPOAESTHESIA [None]
